FAERS Safety Report 24135180 (Version 6)
Quarter: 2024Q4

REPORT INFORMATION
  Report Type: Spontaneous
  Country: CA (occurrence: CA)
  Receive Date: 20240725
  Receipt Date: 20241127
  Transmission Date: 20250115
  Serious: Yes (Other)
  Sender: CELLTRION
  Company Number: CA-PFIZER INC-PV202400093274

PATIENT

DRUGS (6)
  1. INFLECTRA [Suspect]
     Active Substance: INFLIXIMAB-DYYB
     Indication: Crohn^s disease
     Dosage: 1300 MG, EVERY 4 WEEKS
     Route: 042
     Dates: start: 20210528
  2. INFLECTRA [Suspect]
     Active Substance: INFLIXIMAB-DYYB
     Dosage: 1300 MG, EVERY 4 WEEKS
     Route: 042
     Dates: start: 20240205
  3. INFLECTRA [Suspect]
     Active Substance: INFLIXIMAB-DYYB
     Dosage: 1300 MG, EVERY 4 WEEKS
     Route: 042
     Dates: start: 20240729
  4. INFLECTRA [Suspect]
     Active Substance: INFLIXIMAB-DYYB
     Dosage: 1300 MG, EVERY 4 WEEKS
     Route: 042
     Dates: start: 20240826
  5. INFLECTRA [Suspect]
     Active Substance: INFLIXIMAB-DYYB
     Dosage: 1300 MG, EVERY 4 WEEKS
     Route: 042
     Dates: start: 20240826
  6. INFLECTRA [Suspect]
     Active Substance: INFLIXIMAB-DYYB
     Dosage: 1300 MG, EVERY 4 WEEKS
     Route: 042
     Dates: start: 20241118

REACTIONS (13)
  - Postoperative abscess [Recovered/Resolved]
  - Vitamin B12 deficiency [Not Recovered/Not Resolved]
  - Iron deficiency [Not Recovered/Not Resolved]
  - Small intestinal resection [Unknown]
  - Haematemesis [Unknown]
  - Condition aggravated [Recovering/Resolving]
  - Post procedural haemorrhage [Unknown]
  - Postoperative wound infection [Recovered/Resolved]
  - Nausea [Recovering/Resolving]
  - Vomiting [Recovering/Resolving]
  - Abdominal distension [Unknown]
  - Constipation [Unknown]
  - Off label use [Unknown]

NARRATIVE: CASE EVENT DATE: 20240101
